FAERS Safety Report 15233157 (Version 1)
Quarter: 2018Q3

REPORT INFORMATION
  Report Type: Spontaneous
  Country: US (occurrence: US)
  Receive Date: 20180802
  Receipt Date: 20180802
  Transmission Date: 20181010
  Serious: No
  Sender: FDA-Public Use
  Company Number: US-ALLERGAN-1801038US

PATIENT
  Sex: Female
  Weight: 72.57 kg

DRUGS (2)
  1. LEVOBUNOLOL HCL, 0.25% [Suspect]
     Active Substance: LEVOBUNOLOL HYDROCHLORIDE
     Indication: PRODUCT USED FOR UNKNOWN INDICATION
     Dosage: UNK
     Route: 047
  2. LEVOBUNOLOL HCL, 0.25% [Suspect]
     Active Substance: LEVOBUNOLOL HYDROCHLORIDE
     Dosage: UNK

REACTIONS (2)
  - Poor quality drug administered [Unknown]
  - Product quality issue [Unknown]
